FAERS Safety Report 7095391-X (Version None)
Quarter: 2010Q4

REPORT INFORMATION
  Report Type: 
  Country: None (occurrence: None)
  Receive Date: 20101111
  Receipt Date: 20101108
  Transmission Date: 20110411
  Serious: Yes (Hospitalization)
  Sender: FDA-Public Use
  Company Number: JP-TYCO HEALTHCARE/MALLINCKRODT-T201002228

PATIENT
  Age: 62 Year
  Sex: Male

DRUGS (1)
  1. OPTIRAY 350 [Suspect]
     Indication: UROGRAM
     Dosage: 75 ML, SINGLE
     Route: 042
     Dates: start: 20101101, end: 20101101

REACTIONS (1)
  - ANAPHYLACTIC SHOCK [None]
